FAERS Safety Report 4633763-0 (Version None)
Quarter: 2005Q2

REPORT INFORMATION
  Report Type: 
  Country: None (occurrence: None)
  Receive Date: 20050413
  Receipt Date: 20050411
  Transmission Date: 20051028
  Serious: Yes (Other)
  Sender: FDA-Public Use
  Company Number: PHNR2005AU00718

PATIENT
  Age: 52 Year
  Sex: Female
  Weight: 70 kg

DRUGS (3)
  1. LAMISIL [Suspect]
     Indication: DERMATOPHYTOSIS
     Dosage: 250 MG, QD
     Route: 048
     Dates: start: 20040515, end: 20040615
  2. FEMTRAN [Concomitant]
     Indication: MENOPAUSAL SYMPTOMS
     Route: 062
  3. VIOXX [Concomitant]
     Indication: ARTHRITIS
     Dosage: 25 MG, QD
     Route: 048

REACTIONS (2)
  - ANXIETY [None]
  - DEPRESSION [None]
